FAERS Safety Report 26087018 (Version 1)
Quarter: 2025Q4

REPORT INFORMATION
  Report Type: Spontaneous
  Country: IN (occurrence: IN)
  Receive Date: 20251125
  Receipt Date: 20251125
  Transmission Date: 20260117
  Serious: Yes (Life-Threatening, Hospitalization, Other)
  Sender: RANBAXY
  Company Number: IN-SUN PHARMACEUTICAL INDUSTRIES LTD-2025R1-538026

PATIENT
  Age: 29 Year
  Sex: Female

DRUGS (8)
  1. OFLOXACIN [Suspect]
     Active Substance: OFLOXACIN
     Indication: Arthralgia
     Dosage: 200 MILLIGRAM
     Route: 065
  2. OFLOXACIN [Suspect]
     Active Substance: OFLOXACIN
     Indication: Myalgia
  3. ACETAMINOPHEN [Suspect]
     Active Substance: ACETAMINOPHEN
     Indication: Arthralgia
     Dosage: 500 MILLIGRAM
     Route: 065
  4. ACETAMINOPHEN [Suspect]
     Active Substance: ACETAMINOPHEN
     Indication: Myalgia
  5. CEFIXIME [Suspect]
     Active Substance: CEFIXIME
     Indication: Arthralgia
     Dosage: 200 MILLIGRAM
     Route: 065
  6. CEFIXIME [Suspect]
     Active Substance: CEFIXIME
     Indication: Myalgia
  7. Tusso-Dmr [Concomitant]
     Indication: Product used for unknown indication
     Dosage: UNK
     Route: 065
  8. ORAFAST PO [Concomitant]
     Indication: Product used for unknown indication
     Dosage: UNK
     Route: 065

REACTIONS (1)
  - SJS-TEN overlap [Recovering/Resolving]
